FAERS Safety Report 9866809 (Version 3)
Quarter: 2014Q1

REPORT INFORMATION
  Report Type: Report from Study
  Country: CA (occurrence: CA)
  Receive Date: 20140204
  Receipt Date: 20140219
  Transmission Date: 20141002
  Serious: Yes (Other)
  Sender: FDA-Public Use
  Company Number: CA-ROCHE-1183108

PATIENT
  Age: 61 Year
  Sex: Female
  Weight: 86 kg

DRUGS (17)
  1. RITUXAN [Suspect]
     Indication: RHEUMATOID ARTHRITIS
     Dosage: MOST RECENT DOSE ON 21/AUG/2013
     Route: 042
     Dates: start: 20130107
  2. TYLENOL [Suspect]
     Indication: PREMEDICATION
     Route: 048
     Dates: start: 20130107, end: 20130107
  3. TYLENOL [Suspect]
     Route: 048
     Dates: start: 20130807
  4. BENADRYL (CANADA) [Suspect]
     Indication: PREMEDICATION
     Route: 048
     Dates: start: 20130107, end: 20130107
  5. BENADRYL (CANADA) [Suspect]
     Route: 042
     Dates: start: 20130121, end: 20130121
  6. BENADRYL (CANADA) [Suspect]
     Route: 042
     Dates: start: 20130807
  7. SOLU-MEDROL [Suspect]
     Indication: PREMEDICATION
     Dosage: ONCE
     Route: 042
     Dates: start: 20130807
  8. PLAQUENIL [Concomitant]
  9. PAXIL [Concomitant]
  10. FOLIC ACID [Concomitant]
  11. LASIX [Concomitant]
     Route: 065
  12. LANSOPRAZOLE [Concomitant]
  13. AZATHIOPRINE [Concomitant]
  14. CELEBREX [Concomitant]
  15. K ACETATE [Concomitant]
  16. VITAMIN D3 [Concomitant]
  17. CALCIUM CITRATE [Concomitant]

REACTIONS (9)
  - Gingival disorder [Unknown]
  - Infusion related reaction [Unknown]
  - Rash [Unknown]
  - Hypoaesthesia oral [Unknown]
  - Arthralgia [Not Recovered/Not Resolved]
  - Local swelling [Not Recovered/Not Resolved]
  - Local swelling [Not Recovered/Not Resolved]
  - Restless legs syndrome [Recovered/Resolved]
  - Blood pressure increased [Not Recovered/Not Resolved]
